FAERS Safety Report 25862819 (Version 1)
Quarter: 2025Q3

REPORT INFORMATION
  Report Type: Spontaneous
  Country: EU (occurrence: EU)
  Receive Date: 20250930
  Receipt Date: 20250930
  Transmission Date: 20251020
  Serious: Yes (Other)
  Sender: TEVA
  Company Number: None

PATIENT
  Age: 48 Year
  Sex: Male

DRUGS (1)
  1. DICLOFENAC SODIUM [Suspect]
     Active Substance: DICLOFENAC SODIUM
     Indication: Product used for unknown indication
     Dosage: DOSE: 1 TABLET PER DAY
     Route: 048
     Dates: start: 20211214

REACTIONS (2)
  - Vasculitis [Recovering/Resolving]
  - Skin lesion [Recovering/Resolving]

NARRATIVE: CASE EVENT DATE: 20211224
